FAERS Safety Report 11197451 (Version 1)
Quarter: 2015Q2

REPORT INFORMATION
  Report Type: Spontaneous
  Country: FR (occurrence: FR)
  Receive Date: 20150617
  Receipt Date: 20150617
  Transmission Date: 20150821
  Serious: Yes (Hospitalization, Other)
  Sender: FDA-Public Use
  Company Number: FR-GLAXOSMITHKLINE-FR2015GSK082610

PATIENT
  Age: 39 Year
  Sex: Female

DRUGS (5)
  1. ROZEX (METRONIDAZOLE) [Suspect]
     Active Substance: METRONIDAZOLE
     Indication: RASH PRURITIC
     Dosage: UNK
     Route: 061
     Dates: start: 20130510, end: 20130525
  2. TOLEXINE [Suspect]
     Active Substance: DOXYCYCLINE
     Indication: RASH PRURITIC
     Dosage: 100 MG, 1D
     Route: 048
     Dates: start: 20130510, end: 20130525
  3. AERIUS [Suspect]
     Active Substance: DESLORATADINE
     Indication: RASH PRURITIC
     Dosage: UNK
     Route: 048
     Dates: start: 20130510, end: 20130525
  4. LIPIKAR [Concomitant]
     Active Substance: COSMETICS
     Indication: RASH PRURITIC
     Dosage: UNK
     Route: 061
     Dates: start: 20130510, end: 20130525
  5. FLIXOVATE [Suspect]
     Active Substance: FLUTICASONE PROPIONATE
     Indication: RASH PRURITIC
     Dosage: UNK
     Route: 061
     Dates: start: 20130510, end: 20130525

REACTIONS (1)
  - Neutropenia [Recovering/Resolving]

NARRATIVE: CASE EVENT DATE: 20130615
